FAERS Safety Report 10916732 (Version 1)
Quarter: 2015Q1

REPORT INFORMATION
  Report Type: Spontaneous
  Country: US (occurrence: None)
  Receive Date: 20150312
  Receipt Date: 20150312
  Transmission Date: 20150721
  Serious: No
  Sender: FDA-Public Use
  Company Number: None

PATIENT
  Age: 74 Year
  Sex: Female
  Weight: 63.5 kg

DRUGS (8)
  1. OMEGA 3 [Concomitant]
     Active Substance: OMEGA-3 FATTY ACIDS
  2. PACEMAKER [Concomitant]
  3. VITAMIN (ALIVE) [Concomitant]
  4. CALCIUM [Concomitant]
     Active Substance: CALCIUM
  5. CARVEDILOL. [Concomitant]
     Active Substance: CARVEDILOL
  6. CLONIDINE TRANSDERMAL SYSTEM [Suspect]
     Active Substance: CLONIDINE
     Indication: HYPERTENSION
     Dosage: 1 PATCH APPLIED AS MEDICATED PATCHED TO SKIN
     Route: 062
     Dates: start: 20150305, end: 20150307
  7. CLONIDINE. [Concomitant]
     Active Substance: CLONIDINE
  8. WARFARIN [Concomitant]
     Active Substance: WARFARIN

REACTIONS (2)
  - Product formulation issue [None]
  - Application site vesicles [None]

NARRATIVE: CASE EVENT DATE: 20150307
